FAERS Safety Report 16850044 (Version 1)
Quarter: 2019Q3

REPORT INFORMATION
  Report Type: Spontaneous
  Country: US (occurrence: US)
  Receive Date: 20190804
  Receipt Date: 20190804
  Transmission Date: 20191005
  Serious: No
  Sender: FDA-Public Use
  Company Number: None

PATIENT
  Sex: Male

DRUGS (1)
  1. AVONEX [Suspect]
     Active Substance: INTERFERON BETA-1A
     Indication: MULTIPLE SCLEROSIS
     Route: 030
     Dates: start: 20190607, end: 20190729

REACTIONS (5)
  - Abdominal pain [None]
  - Skin discolouration [None]
  - Injection site reaction [None]
  - Pain in extremity [None]
  - Dyspnoea [None]
